FAERS Safety Report 4867906-0 (Version None)
Quarter: 2005Q4

REPORT INFORMATION
  Report Type: 
  Country: None (occurrence: None)
  Receive Date: 20051223
  Receipt Date: 20051208
  Transmission Date: 20060501
  Serious: Yes (Hospitalization, Other)
  Sender: FDA-Public Use
  Company Number: DEU-2005-0001608

PATIENT
  Age: 60 Year
  Sex: Female
  Weight: 105 kg

DRUGS (11)
  1. OXYCONTIN [Suspect]
     Indication: BACK PAIN
     Dosage: 20 MG, DAILY, ORAL
     Route: 048
     Dates: start: 20050503, end: 20051031
  2. NALOXONE [Suspect]
     Indication: BACK PAIN
     Dosage: 5 MG, PRN, ORAL
     Route: 048
     Dates: start: 20050503, end: 20051013
  3. OXYCODONE HCL [Suspect]
     Indication: BACK PAIN
     Dosage: 5 MG, PRN, ORAL
     Route: 048
     Dates: start: 20050413
  4. ASPIRIN [Concomitant]
  5. METOPROLOL SUCCINATE [Concomitant]
  6. RAMIPRIL [Concomitant]
  7. INSULIN [Concomitant]
  8. TRAMAL [Concomitant]
  9. OMEPRAZOLE [Concomitant]
  10. KEIMAX (CEFTIBUTEN) [Concomitant]
  11. ISCOVER (CLOPIDOGREL SULFATE) [Concomitant]

REACTIONS (9)
  - ANGINA UNSTABLE [None]
  - BLOOD PRESSURE DECREASED [None]
  - CORONARY ARTERY DISEASE [None]
  - CORONARY ARTERY STENOSIS [None]
  - ELECTROCARDIOGRAM ST SEGMENT DEPRESSION [None]
  - ELECTROCARDIOGRAM ST SEGMENT ELEVATION [None]
  - MUSCULOSKELETAL CHEST PAIN [None]
  - MYOCARDIAL ISCHAEMIA [None]
  - SENSATION OF PRESSURE [None]
